FAERS Safety Report 6756787-6 (Version None)
Quarter: 2010Q2

REPORT INFORMATION
  Report Type: 
  Country: None (occurrence: None)
  Receive Date: 20100604
  Receipt Date: 20100528
  Transmission Date: 20101027
  Serious: Yes (Other)
  Sender: FDA-Public Use
  Company Number: US-JNJFOC-20100600020

PATIENT
  Sex: Female
  Weight: 65.77 kg

DRUGS (8)
  1. DURAGESIC-100 [Suspect]
     Indication: BACK PAIN
     Route: 062
  2. DURAGESIC-100 [Suspect]
     Route: 062
  3. DURAGESIC-100 [Suspect]
     Route: 062
  4. DURAGESIC-100 [Suspect]
     Route: 062
  5. METHADONE [Suspect]
     Indication: BACK PAIN
     Route: 065
  6. PROVIGIL [Suspect]
     Indication: BACK PAIN
     Route: 065
  7. OXYCODONE [Concomitant]
     Indication: BREAKTHROUGH PAIN
     Route: 048
  8. ZANAFLEX [Concomitant]
     Indication: MUSCLE SPASMS
     Route: 048

REACTIONS (8)
  - BACK INJURY [None]
  - DRUG DOSE OMISSION [None]
  - LOCAL SWELLING [None]
  - OSTEOMALACIA [None]
  - PANIC ATTACK [None]
  - SOMNOLENCE [None]
  - SWELLING FACE [None]
  - WRONG TECHNIQUE IN DRUG USAGE PROCESS [None]
